FAERS Safety Report 11407680 (Version 2)
Quarter: 2015Q4

REPORT INFORMATION
  Report Type: Report from Study
  Country: JP (occurrence: JP)
  Receive Date: 20150821
  Receipt Date: 20151210
  Transmission Date: 20160304
  Serious: Yes (Death)
  Sender: FDA-Public Use
  Company Number: JP-SPECTRUM PHARMACEUTICALS, INC.-15-Z-JP-00351

PATIENT
  Age: 74 Year
  Sex: Male

DRUGS (4)
  1. RITUXIMAB [Suspect]
     Active Substance: RITUXIMAB
     Dosage: 250 MG/M2, SINGLE
     Route: 042
     Dates: start: 20090722, end: 20090722
  2. ZEVALIN [Suspect]
     Active Substance: IBRITUMOMAB TIUXETAN
     Indication: EXTRANODAL MARGINAL ZONE B-CELL LYMPHOMA (MALT TYPE)
     Dosage: 710 MBQ, SINGLE
     Route: 042
     Dates: start: 20090729, end: 20090729
  3. ZEVALIN [Suspect]
     Active Substance: IBRITUMOMAB TIUXETAN
     Dosage: 130 MBQ, SINGLE
     Dates: start: 20090722, end: 20090722
  4. RITUXIMAB [Suspect]
     Active Substance: RITUXIMAB
     Indication: EXTRANODAL MARGINAL ZONE B-CELL LYMPHOMA (MALT TYPE)
     Dosage: 250 MG/M2, SINGLE
     Route: 042
     Dates: start: 20090729, end: 20090729

REACTIONS (1)
  - Acute hepatitis B [Fatal]

NARRATIVE: CASE EVENT DATE: 20140408
